FAERS Safety Report 17206419 (Version 1)
Quarter: 2020Q1

REPORT INFORMATION
  Report Type: Spontaneous
  Country: US (occurrence: US)
  Receive Date: 20191226
  Receipt Date: 20191226
  Transmission Date: 20200409
  Serious: No
  Sender: FDA-Public Use
  Company Number: None

PATIENT
  Age: 47 Year
  Sex: Male

DRUGS (2)
  1. OXYCODONE/ACETAMINOPHEN [Suspect]
     Active Substance: ACETAMINOPHEN\OXYCODONE HYDROCHLORIDE
     Indication: PAIN
     Route: 048
     Dates: start: 20190927
  2. GABAPENTIN 300MG [Concomitant]
     Active Substance: GABAPENTIN
     Dates: start: 20191125

REACTIONS (3)
  - Product quality issue [None]
  - Abdominal discomfort [None]
  - Influenza like illness [None]

NARRATIVE: CASE EVENT DATE: 20191226
